FAERS Safety Report 8972935 (Version 1)
Quarter: 2012Q4

REPORT INFORMATION
  Report Type: 
  Country: US (occurrence: US)
  Receive Date: 20121218
  Receipt Date: 20121218
  Transmission Date: 20130627
  Serious: No
  Sender: FDA-Public Use
  Company Number: US-BRISTOL-MYERS SQUIBB COMPANY-16451999

PATIENT
  Sex: Female

DRUGS (1)
  1. ABILIFY [Suspect]
     Indication: DEPRESSION
     Dosage: Started as 2 mg, On 31Jan2012 dose increased 5mg. reduced to 2 mg
     Dates: start: 20120131

REACTIONS (3)
  - Pain [Not Recovered/Not Resolved]
  - Muscle spasms [Not Recovered/Not Resolved]
  - Paraesthesia [Not Recovered/Not Resolved]
